FAERS Safety Report 18903237 (Version 2)
Quarter: 2021Q1

REPORT INFORMATION
  Report Type: Spontaneous
  Country: JP (occurrence: JP)
  Receive Date: 20210217
  Receipt Date: 20210329
  Transmission Date: 20210420
  Serious: Yes (Other)
  Sender: FDA-Public Use
  Company Number: JP-CELGENEUS-JPN-20210203292

PATIENT
  Age: 9 Decade
  Sex: Male

DRUGS (2)
  1. POMALYST [Suspect]
     Active Substance: POMALIDOMIDE
     Indication: PLASMA CELL MYELOMA
     Dosage: 1 MILLIGRAM
     Route: 048
     Dates: start: 20210127, end: 20210204
  2. LENADEX [Suspect]
     Active Substance: DEXAMETHASONE ACETATE
     Indication: PLASMA CELL MYELOMA
     Route: 048
     Dates: end: 2021

REACTIONS (1)
  - Taste disorder [Recovering/Resolving]

NARRATIVE: CASE EVENT DATE: 202102
